FAERS Safety Report 10029499 (Version 1)
Quarter: 2014Q1

REPORT INFORMATION
  Report Type: Spontaneous
  Country: US (occurrence: None)
  Receive Date: 20140320
  Receipt Date: 20140320
  Transmission Date: 20141002
  Serious: Yes (Death, Life-Threatening, Hospitalization, Disabling)
  Sender: FDA-Public Use
  Company Number: None

PATIENT
  Age: 98 Year
  Sex: Female
  Weight: 52.16 kg

DRUGS (14)
  1. DICLOFENAC [Suspect]
     Indication: ARTHRALGIA
     Route: 048
     Dates: start: 20130216, end: 20130222
  2. AMLODIPINE [Concomitant]
  3. ASPIRIN [Concomitant]
  4. DITROPAN [Concomitant]
  5. FUROSEMIDE [Concomitant]
  6. LIPITOR [Concomitant]
  7. LISINOPRIL [Concomitant]
  8. MUCINEX [Concomitant]
  9. XANEX [Concomitant]
  10. MULTIVITAMIN [Concomitant]
  11. TYLENOL ARTHRITIS [Concomitant]
  12. PRESERVISION [Concomitant]
  13. SUPER B COMPLEX [Concomitant]
  14. MEMORISE SUPPLEMENT [Concomitant]

REACTIONS (7)
  - Hypersensitivity [None]
  - Swelling face [None]
  - Swelling [None]
  - Oedema peripheral [None]
  - Heart rate irregular [None]
  - Asthenia [None]
  - Fall [None]
